FAERS Safety Report 10814552 (Version 1)
Quarter: 2015Q1

REPORT INFORMATION
  Report Type: Spontaneous
  Country: GB (occurrence: GB)
  Receive Date: 20150218
  Receipt Date: 20150218
  Transmission Date: 20150721
  Serious: Yes (Other)
  Sender: FDA-Public Use
  Company Number: GB-BAYER-2015-021104

PATIENT
  Age: 33 Year
  Sex: Female
  Weight: 73.2 kg

DRUGS (4)
  1. DOMPERIDONE [Concomitant]
     Active Substance: DOMPERIDONE
     Indication: EPIDURAL ANAESTHESIA
  2. SYNTOCINON [Concomitant]
     Active Substance: OXYTOCIN
     Indication: EPIDURAL ANAESTHESIA
  3. FENTANYL. [Concomitant]
     Active Substance: FENTANYL
     Indication: EPIDURAL ANAESTHESIA
  4. MIRENA [Suspect]
     Active Substance: LEVONORGESTREL
     Indication: CONTRACEPTION
     Dosage: 20 MCG/24HR, CONT
     Route: 015
     Dates: start: 20150129, end: 20150202

REACTIONS (1)
  - Suppressed lactation [Not Recovered/Not Resolved]

NARRATIVE: CASE EVENT DATE: 20150130
